FAERS Safety Report 4303312-5 (Version None)
Quarter: 2004Q1

REPORT INFORMATION
  Report Type: 
  Country: None (occurrence: None)
  Receive Date: 20040223
  Receipt Date: 20040211
  Transmission Date: 20041129
  Serious: Yes (Other)
  Sender: FDA-Public Use
  Company Number: 2004198374JP

PATIENT

DRUGS (2)
  1. XALATAN [Suspect]
     Dosage: OPHTHALMIC
     Route: 047
  2. AZOPT [Concomitant]

REACTIONS (3)
  - CONVULSION [None]
  - HYPOAESTHESIA [None]
  - OEDEMA PERIPHERAL [None]
